FAERS Safety Report 6778832-4 (Version None)
Quarter: 2010Q2

REPORT INFORMATION
  Report Type: 
  Country: None (occurrence: None)
  Receive Date: 20100618
  Receipt Date: 20100604
  Transmission Date: 20101027
  Serious: Yes (Other)
  Sender: FDA-Public Use
  Company Number: NL-JNJFOC-20100605047

PATIENT
  Age: 61 Year

DRUGS (4)
  1. VERMOX [Suspect]
     Indication: HOOKWORM INFECTION
     Dosage: FOR 3 DAYS
     Route: 065
  2. VERMOX [Suspect]
     Indication: TRICHURIASIS
     Dosage: FOR 3 DAYS
     Route: 065
  3. THIABENDAZOLE [Suspect]
     Indication: STRONGYLOIDIASIS
     Dosage: FOR 2 DAYS
     Route: 065
  4. NIRIDAZOLE [Suspect]
     Indication: SCHISTOSOMIASIS

REACTIONS (2)
  - ANAEMIA [None]
  - DIZZINESS [None]
